FAERS Safety Report 4917052-2 (Version None)
Quarter: 2006Q1

REPORT INFORMATION
  Report Type: 
  Country: None (occurrence: None)
  Receive Date: 20060214
  Receipt Date: 20060203
  Transmission Date: 20060701
  Serious: Yes (Other)
  Sender: FDA-Public Use
  Company Number: 200610506GDS

PATIENT
  Age: 84 Year
  Sex: Female

DRUGS (5)
  1. CIPRO [Suspect]
     Dosage: 500 MG, BID, ORAL
     Route: 048
  2. CHLORAL HYDRATE [Concomitant]
  3. COUMADIN [Concomitant]
  4. E.E.S. [Concomitant]
  5. PREDNISONE [Concomitant]

REACTIONS (6)
  - ALANINE AMINOTRANSFERASE INCREASED [None]
  - ASPARTATE AMINOTRANSFERASE INCREASED [None]
  - BLOOD ALKALINE PHOSPHATASE INCREASED [None]
  - BLOOD CREATINE PHOSPHOKINASE INCREASED [None]
  - BLOOD LACTATE DEHYDROGENASE INCREASED [None]
  - MOUTH ULCERATION [None]
